FAERS Safety Report 13814259 (Version 1)
Quarter: 2017Q3

REPORT INFORMATION
  Report Type: Spontaneous
  Country: PH (occurrence: PH)
  Receive Date: 20170731
  Receipt Date: 20170731
  Transmission Date: 20171127
  Serious: Yes (Hospitalization)
  Sender: FDA-Public Use
  Company Number: PHHY2017PH111945

PATIENT
  Sex: Male

DRUGS (2)
  1. SCAPHO [Suspect]
     Active Substance: SECUKINUMAB
     Indication: NEURODERMATITIS
     Dosage: 300 MG (ONCE A WEEK FOR THE FIRST WEEKS)
     Route: 058
     Dates: start: 20170425, end: 20170525
  2. SCAPHO [Interacting]
     Active Substance: SECUKINUMAB
     Indication: DERMATITIS ATOPIC

REACTIONS (3)
  - Product use in unapproved indication [Unknown]
  - Generalised erythema [Not Recovered/Not Resolved]
  - Abscess [Unknown]

NARRATIVE: CASE EVENT DATE: 20170425
